FAERS Safety Report 8208575-1 (Version None)
Quarter: 2012Q1

REPORT INFORMATION
  Report Type: 
  Country: None (occurrence: None)
  Receive Date: 20120314
  Receipt Date: 20120308
  Transmission Date: 20120608
  Serious: Yes (Death, Hospitalization)
  Sender: FDA-Public Use
  Company Number: US-GLAXOSMITHKLINE-B0709381A

PATIENT
  Age: 52 Year
  Sex: Female

DRUGS (10)
  1. PAXIL [Concomitant]
  2. PENTOXIFYLLINE [Concomitant]
  3. INSULIN [Concomitant]
  4. DETROL [Concomitant]
  5. AVANDAMET [Suspect]
     Indication: DIABETES MELLITUS
     Route: 048
     Dates: start: 20090101, end: 20091001
  6. GLIPIZIDE [Concomitant]
     Dates: end: 20080821
  7. CRESTOR [Concomitant]
  8. METFORMIN [Concomitant]
  9. BENAZEPRIL HYDROCHLORIDE [Concomitant]
  10. AVANDIA [Suspect]
     Indication: DIABETES MELLITUS
     Dosage: 8MG PER DAY
     Route: 048

REACTIONS (3)
  - CARDIAC ARREST [None]
  - MYOCARDIAL INFARCTION [None]
  - CORONARY ARTERY DISEASE [None]
